FAERS Safety Report 8916370 (Version 9)
Quarter: 2017Q3

REPORT INFORMATION
  Report Type: Report from Study
  Country: GB (occurrence: GB)
  Receive Date: 20121120
  Receipt Date: 20170816
  Transmission Date: 20171128
  Serious: Yes (Death)
  Sender: FDA-Public Use
  Company Number: GB-PFIZER INC-2012274222

PATIENT
  Age: 1 Day
  Sex: Female
  Weight: .81 kg

DRUGS (2)
  1. CELECOXIB. [Suspect]
     Active Substance: CELECOXIB
     Indication: ADENOMATOUS POLYPOSIS COLI
     Dosage: 400 MG, 2X/DAY
     Route: 064
     Dates: start: 20101218, end: 20120923
  2. MICROGYNON [Concomitant]
     Active Substance: ETHINYL ESTRADIOL\LEVONORGESTREL ACETATE
     Indication: ORAL CONTRACEPTION
     Dosage: 30
     Route: 064
     Dates: start: 201009

REACTIONS (3)
  - Premature baby [Fatal]
  - Escherichia sepsis [Fatal]
  - Maternal exposure timing unspecified [Fatal]

NARRATIVE: CASE EVENT DATE: 201211
